FAERS Safety Report 13780229 (Version 2)
Quarter: 2019Q1

REPORT INFORMATION
  Report Type: Spontaneous
  Country: GB (occurrence: GB)
  Receive Date: 20170724
  Receipt Date: 20190222
  Transmission Date: 20190417
  Serious: Yes (Other)
  Sender: FDA-Public Use
  Company Number: GB-DEXPHARM-20170868

PATIENT
  Age: 68 Year
  Sex: Female

DRUGS (18)
  1. FABRAZYME [Suspect]
     Active Substance: AGALSIDASE BETA
     Dosage: EVERY OTHER WEEK
     Route: 041
     Dates: end: 20170420
  2. FULTIUM-D3 [Suspect]
     Active Substance: CHOLECALCIFEROL
     Dosage: DOSE:800 UNIT(S)
  3. SALBUTAMOL [Suspect]
     Active Substance: ALBUTEROL
     Dosage: 2 PUFF
     Route: 055
  4. LYRICA [Concomitant]
     Active Substance: PREGABALIN
     Dosage: DAILY DOSE: 150 MG MILLGRAM(S) EVERY DAYS
  5. LANSOPRAZOLE. [Suspect]
     Active Substance: LANSOPRAZOLE
     Dosage: DAILY DOSE: 30 MG MILLGRAM(S) EVERY DAYS
  6. FABRAZYME [Suspect]
     Active Substance: AGALSIDASE BETA
     Route: 041
  7. FABRAZYME [Suspect]
     Active Substance: AGALSIDASE BETA
     Route: 041
     Dates: start: 20170206
  8. AMIODARONE [Suspect]
     Active Substance: AMIODARONE
     Dosage: DAILY DOSE: 200 MG MILLGRAM(S) EVERY DAYS
  9. CITALOPRAM [Suspect]
     Active Substance: CITALOPRAM HYDROBROMIDE
     Dosage: DAILY DOSE: 10 MG MILLGRAM(S) EVERY DAYS
  10. NEBIVOLOL. [Suspect]
     Active Substance: NEBIVOLOL
     Dosage: DAILY DOSE: 2.5 MG MILLGRAM(S) EVERY DAYS
  11. PERINDOPRIL [Suspect]
     Active Substance: PERINDOPRIL
     Dosage: DAILY DOSE: 4 MG MILLGRAM(S) EVERY DAYS
  12. FABRAZYME [Suspect]
     Active Substance: AGALSIDASE BETA
     Dosage: EVERY OTHER WEEK
     Route: 041
  13. ASPIRIN. [Suspect]
     Active Substance: ASPIRIN
     Dosage: DAILY DOSE: 75 MG MILLGRAM(S) EVERY DAYS
  14. COCODAMOL [Suspect]
     Active Substance: ACETAMINOPHEN\CODEINE PHOSPHATE
     Dosage: DOSE: 30/500MGS 4X DAILY
  15. SALBUTAMOL [Concomitant]
     Active Substance: ALBUTEROL
     Indication: COUGH
     Dosage: 2 PUFFS
     Route: 055
  16. FABRAZYME [Suspect]
     Active Substance: AGALSIDASE BETA
     Route: 041
     Dates: end: 20160915
  17. FABRAZYME [Suspect]
     Active Substance: AGALSIDASE BETA
     Route: 041
     Dates: end: 20170420
  18. CLOPIDOGREL ZENTIVA [Suspect]
     Active Substance: CLOPIDOGREL BISULFATE
     Dosage: DAILY DOSE: 75 MG MILLGRAM(S) EVERY DAYS

REACTIONS (3)
  - Wheezing [Unknown]
  - Lower respiratory tract infection [Unknown]
  - Cough [Recovered/Resolved]
